FAERS Safety Report 7417239-3 (Version None)
Quarter: 2011Q2

REPORT INFORMATION
  Report Type: 
  Country: None (occurrence: None)
  Receive Date: 20110415
  Receipt Date: 20101130
  Transmission Date: 20111010
  Serious: Yes (Death)
  Sender: FDA-Public Use
  Company Number: US-BAYER-201028724NA

PATIENT
  Age: 23 Year
  Sex: Female
  Weight: 52.608 kg

DRUGS (5)
  1. YASMIN [Suspect]
     Route: 048
     Dates: start: 20071211
  2. LASIX [Concomitant]
  3. YAZ [Suspect]
     Dosage: UNK
  4. ZOLOFT [Concomitant]
  5. VICODIN [Concomitant]

REACTIONS (1)
  - ARRHYTHMIA [None]
